FAERS Safety Report 9674547 (Version 1)
Quarter: 2013Q4

REPORT INFORMATION
  Report Type: Spontaneous
  Country: DE (occurrence: DE)
  Receive Date: 20131107
  Receipt Date: 20131107
  Transmission Date: 20140711
  Serious: Yes (Congenital Anomaly, Other)
  Sender: FDA-Public Use
  Company Number: DE-DRREDDYS-GER/GER/13/0035315

PATIENT
  Age: 1 Day
  Sex: Male
  Weight: 4.04 kg

DRUGS (4)
  1. OLANZAPINE [Suspect]
     Indication: PRODUCT USED FOR UNKNOWN INDICATION
     Dosage: 7.5MG
     Route: 064
     Dates: start: 20081031, end: 20081218
  2. PAROXETINE [Suspect]
     Indication: PRODUCT USED FOR UNKNOWN INDICATION
     Dosage: 20 [MG/D (BIS 10) ]/ 20 MG BIS ZUR 22. SSW, DANN REDUKTION AUF 10 MG
     Route: 064
     Dates: start: 20090105, end: 20090415
  3. PAROXETINE [Suspect]
     Route: 064
  4. THYRONAJOD [Concomitant]
     Indication: PRODUCT USED FOR UNKNOWN INDICATION
     Dosage: 150 (UG/D)/5 (UG/D)
     Route: 064

REACTIONS (2)
  - Talipes [Recovering/Resolving]
  - Foetal exposure during pregnancy [Unknown]
